FAERS Safety Report 9520431 (Version 1)
Quarter: 2013Q3

REPORT INFORMATION
  Report Type: Report from Study
  Country: FR (occurrence: FR)
  Receive Date: 20130912
  Receipt Date: 20130912
  Transmission Date: 20140515
  Serious: Yes (Hospitalization)
  Sender: FDA-Public Use
  Company Number: FR-009507513-1309FRA004297

PATIENT
  Age: 11 Year
  Sex: Male

DRUGS (16)
  1. TEMOZOLOMIDE [Suspect]
     Indication: BRAIN NEOPLASM MALIGNANT
     Dosage: 180 MG, CYCLICAL
     Dates: start: 20130703, end: 20130707
  2. TEMOZOLOMIDE [Suspect]
     Dosage: 240 MG, CYCLICAL
     Dates: start: 20130730, end: 20130803
  3. BEVACIZUMAB [Suspect]
     Indication: BRAIN NEOPLASM MALIGNANT
     Dosage: 362.5 MG, ONCE
     Dates: start: 20130422, end: 20130422
  4. BEVACIZUMAB [Suspect]
     Dosage: 387.5 MG, ONCE
     Dates: start: 20130715, end: 20130715
  5. THERAPEUTIC RADIOPHARMACEUTICAL (UNSPECIFIED) [Suspect]
     Indication: BRAIN NEOPLASM MALIGNANT
     Dosage: 9GY
     Dates: start: 20130422, end: 20130426
  6. THERAPEUTIC RADIOPHARMACEUTICAL (UNSPECIFIED) [Suspect]
     Dosage: 7.2 GY
     Dates: start: 20130429, end: 20130503
  7. THERAPEUTIC RADIOPHARMACEUTICAL (UNSPECIFIED) [Suspect]
     Dosage: 5.4 GY
     Dates: start: 20130506, end: 20130510
  8. THERAPEUTIC RADIOPHARMACEUTICAL (UNSPECIFIED) [Suspect]
     Dosage: 7.2 GY
     Dates: start: 20130513, end: 20130517
  9. THERAPEUTIC RADIOPHARMACEUTICAL (UNSPECIFIED) [Suspect]
     Dosage: 7.2 GY
     Dates: start: 20130521, end: 20130524
  10. THERAPEUTIC RADIOPHARMACEUTICAL (UNSPECIFIED) [Suspect]
     Dosage: 9 GY
     Dates: start: 20130527, end: 20130531
  11. THERAPEUTIC RADIOPHARMACEUTICAL (UNSPECIFIED) [Suspect]
     Dosage: 9 GY
     Dates: start: 20130603, end: 20130607
  12. DECTANCYL [Concomitant]
     Dosage: 2.5 MG, TID
     Route: 048
  13. DECTANCYL [Concomitant]
     Dosage: 2.5 MG, BID
     Route: 048
  14. DECTANCYL [Concomitant]
     Dosage: 2.5 MG, QD
     Route: 048
  15. BACTRIM [Concomitant]
     Indication: PROPHYLAXIS
  16. ZOPHREN (ONDANSETRON HYDROCHLORIDE) [Concomitant]
     Indication: PROPHYLAXIS

REACTIONS (2)
  - Purpura [Not Recovered/Not Resolved]
  - Pyrexia [Not Recovered/Not Resolved]
